FAERS Safety Report 19677412 (Version 4)
Quarter: 2021Q3

REPORT INFORMATION
  Report Type: Report from Study
  Country: US (occurrence: US)
  Receive Date: 20210809
  Receipt Date: 20210916
  Transmission Date: 20211014
  Serious: Yes (Hospitalization)
  Sender: FDA-Public Use
  Company Number: NVSC2021US179539

PATIENT
  Sex: Female

DRUGS (1)
  1. PIQRAY [Suspect]
     Active Substance: ALPELISIB
     Indication: PRODUCT USED FOR UNKNOWN INDICATION
     Dosage: UNK
     Route: 048

REACTIONS (11)
  - Fluid imbalance [Unknown]
  - Rash [Unknown]
  - Discharge [Unknown]
  - Stomatitis [Unknown]
  - Oral mucosal erythema [Unknown]
  - Blood glucose increased [Unknown]
  - Skin burning sensation [Unknown]
  - Nausea [Unknown]
  - Diarrhoea [Unknown]
  - Oral pain [Unknown]
  - Pruritus [Unknown]
